FAERS Safety Report 8860312 (Version 3)
Quarter: 2013Q1

REPORT INFORMATION
  Report Type: Spontaneous
  Country: US (occurrence: US)
  Receive Date: 20121025
  Receipt Date: 20130131
  Transmission Date: 20140127
  Serious: No
  Sender: FDA-Public Use
  Company Number: US-PFIZER INC-2012265327

PATIENT
  Age: 48 Year
  Sex: Female

DRUGS (15)
  1. LYRICA [Suspect]
     Indication: FIBROMYALGIA
     Dosage: 75 MG, 2X/DAY
     Route: 048
     Dates: start: 201203
  2. LYRICA [Suspect]
     Indication: BACK PAIN
  3. LYRICA [Suspect]
     Indication: NECK PAIN
  4. METFORMIN [Concomitant]
     Dosage: 1000 MG, 2X/DAY
  5. ALPRAZOLAM [Concomitant]
     Dosage: 0.25 MG, 2X/DAY
  6. OXYCODONE [Concomitant]
     Dosage: 5MG 1 Q6 PRN
  7. NEURONTIN [Concomitant]
     Dosage: 100 MG, 3X/DAY
  8. GLIPIZIDE ER [Concomitant]
     Dosage: 10 MG QD
  9. OMEPRAZOLE [Concomitant]
     Dosage: 40 MG, 2X/DAY
  10. CYCLOBENZAPRINE [Concomitant]
     Dosage: 10 MG, 2X/DAY
  11. LASIX [Concomitant]
     Dosage: 40 MG, 2X/DAY
  12. VENTOLIN INHALER [Concomitant]
     Dosage: UNK
  13. ALBUTEROL NEBULIZER [Concomitant]
     Dosage: UNK
  14. ADVAIR [Concomitant]
     Dosage: FLUTICASONE PROPIONATE 250/ SALMETEROL XINAFOATE 50
  15. SPIRIVA [Concomitant]
     Dosage: 18 UG 1 DAILY

REACTIONS (1)
  - Feeling abnormal [Unknown]
